FAERS Safety Report 7793674-9 (Version None)
Quarter: 2011Q4

REPORT INFORMATION
  Report Type: 
  Country: None (occurrence: None)
  Receive Date: 20111003
  Receipt Date: 20110921
  Transmission Date: 20120403
  Serious: Yes (Hospitalization)
  Sender: FDA-Public Use
  Company Number: US-BAYER-2011-014845

PATIENT
  Age: 21 Year
  Sex: Female
  Weight: 105.67 kg

DRUGS (1)
  1. YAZ [Suspect]
     Indication: CONTRACEPTION
     Dosage: UNK
     Route: 048
     Dates: start: 20080101, end: 20080701

REACTIONS (4)
  - PAIN [None]
  - CHOLECYSTECTOMY [None]
  - INJURY [None]
  - CHOLECYSTITIS CHRONIC [None]
